FAERS Safety Report 17159624 (Version 1)
Quarter: 2019Q4

REPORT INFORMATION
  Report Type: Report from Study
  Country: SG (occurrence: SG)
  Receive Date: 20191216
  Receipt Date: 20191216
  Transmission Date: 20200122
  Serious: Yes (Hospitalization)
  Sender: FDA-Public Use
  Company Number: PHHO2019SG009776

PATIENT
  Age: 63 Year
  Sex: Male
  Weight: 65.2 kg

DRUGS (11)
  1. TRAMETINIB [Suspect]
     Active Substance: TRAMETINIB
     Indication: ADENOCARCINOMA PANCREAS
  2. FENTANYL. [Concomitant]
     Active Substance: FENTANYL
     Indication: PAIN
     Dosage: 12 UG/HR, Q72H
     Route: 062
     Dates: start: 20190823
  3. RUXOLITINIB [Suspect]
     Active Substance: RUXOLITINIB
     Indication: COLORECTAL ADENOCARCINOMA
     Dosage: 15 MG, BID
     Route: 048
     Dates: start: 20190910, end: 20191001
  4. TRAMETINIB [Suspect]
     Active Substance: TRAMETINIB
     Indication: COLORECTAL ADENOCARCINOMA
     Dosage: 2 MG, QMO
     Route: 048
     Dates: start: 20190827, end: 20191001
  5. GABAPENTIN. [Concomitant]
     Active Substance: GABAPENTIN
     Indication: NEUROPATHY PERIPHERAL
     Dosage: 300-600 MG
     Route: 005
     Dates: start: 20190823
  6. BISACODYL. [Concomitant]
     Active Substance: BISACODYL
     Dosage: 10 MG, BID
     Route: 048
     Dates: start: 20191024
  7. MORPHINE [Concomitant]
     Active Substance: MORPHINE
     Indication: PAIN
     Dosage: IG PRN
     Route: 048
     Dates: start: 20191001
  8. PREGABALIN. [Concomitant]
     Active Substance: PREGABALIN
     Indication: NEUROPATHY PERIPHERAL
     Dosage: 225 MG, BID
     Route: 048
     Dates: start: 20191017
  9. RUXOLITINIB [Suspect]
     Active Substance: RUXOLITINIB
     Indication: ADENOCARCINOMA PANCREAS
  10. PARACETAMOL [Concomitant]
     Active Substance: ACETAMINOPHEN
     Indication: PYREXIA
     Dosage: 1 G, QD
     Route: 048
     Dates: start: 20191001
  11. BISACODYL. [Concomitant]
     Active Substance: BISACODYL
     Indication: CONSTIPATION
     Dosage: 2 DF, QD
     Route: 048
     Dates: start: 2019, end: 20191007

REACTIONS (3)
  - Sepsis [Recovered/Resolved with Sequelae]
  - Sepsis [Recovered/Resolved]
  - Aspartate aminotransferase [Recovered/Resolved]

NARRATIVE: CASE EVENT DATE: 20191001
